FAERS Safety Report 19817063 (Version 2)
Quarter: 2021Q3

REPORT INFORMATION
  Report Type: Spontaneous
  Country: US (occurrence: US)
  Receive Date: 20210910
  Receipt Date: 20210914
  Transmission Date: 20211014
  Serious: Yes (Other)
  Sender: FDA-Public Use
  Company Number: US-PFIZER INC-2021399239

PATIENT
  Age: 90 Year

DRUGS (1)
  1. XALATAN [Suspect]
     Active Substance: LATANOPROST
     Dosage: 2.5 ML (1 DROP BOTH EYES)

REACTIONS (5)
  - Fall [Unknown]
  - Memory impairment [Unknown]
  - Concussion [Unknown]
  - Eye disorder [Unknown]
  - Ejection fraction decreased [Unknown]

NARRATIVE: CASE EVENT DATE: 20210407
